FAERS Safety Report 4371978-X (Version None)
Quarter: 2004Q2

REPORT INFORMATION
  Report Type: 
  Country: None (occurrence: None)
  Receive Date: 20040603
  Receipt Date: 20040603
  Transmission Date: 20050107
  Serious: Yes (Hospitalization)
  Sender: FDA-Public Use
  Company Number: None

PATIENT
  Age: 60 Year
  Sex: Female
  Weight: 69.5 kg

DRUGS (13)
  1. GEMCITABINE [Suspect]
     Indication: NON-SMALL CELL LUNG CANCER STAGE IV
     Dosage: 2175 MG 1+8 Q 21 INTRAVENOUS
     Route: 042
     Dates: start: 20040503, end: 20040527
  2. CARBOPLATIN [Suspect]
     Indication: NON-SMALL CELL LUNG CANCER STAGE IV
     Dosage: 588 MG 1 + 8 Q21 INTRAVENOUS
     Route: 042
     Dates: start: 20040503, end: 20040527
  3. FAMVIR [Concomitant]
  4. ZANTAC [Concomitant]
  5. DOCUSATE SODIUM [Concomitant]
  6. ATIVAN [Concomitant]
  7. FAMOTIDINE [Concomitant]
  8. MAGNESIUM HYDROIDE [Concomitant]
  9. DYPHENHYDRAMINE [Concomitant]
  10. LOVOFLOXACIN [Concomitant]
  11. LORAZEPAM [Concomitant]
  12. ACETAMINOPHEN [Concomitant]
  13. MAGNESIUM CITRATE [Concomitant]

REACTIONS (2)
  - NEUTROPENIA [None]
  - PYREXIA [None]
